FAERS Safety Report 7804752-X (Version None)
Quarter: 2011Q4

REPORT INFORMATION
  Report Type: 
  Country: None (occurrence: None)
  Receive Date: 20111010
  Receipt Date: 20111003
  Transmission Date: 20120403
  Serious: Yes (Death)
  Sender: FDA-Public Use
  Company Number: US-CELGENEUS-163-21880-11100175

PATIENT
  Sex: Female

DRUGS (13)
  1. ZOMETA [Concomitant]
     Dosage: 4MG/5ML
     Route: 065
  2. REVLIMID [Suspect]
     Dosage: 25 MILLIGRAM
     Route: 048
     Dates: start: 20110701
  3. CALCIUM CITRATE [Concomitant]
     Route: 048
  4. KLOR-CON [Concomitant]
     Dosage: 10 MILLIEQUIVALENTS
     Route: 048
  5. REVLIMID [Suspect]
     Indication: MULTIPLE MYELOMA
     Dosage: 10 MILLIGRAM
     Route: 048
     Dates: start: 20110316
  6. CARDIZEM [Concomitant]
     Dosage: 30 MILLIGRAM
     Route: 048
  7. WELCHOL [Concomitant]
     Dosage: 625 MILLIGRAM
     Route: 048
  8. FUROSEMIDE [Concomitant]
     Dosage: 20 MILLIGRAM
     Route: 048
  9. ASPIRIN [Concomitant]
     Dosage: 81 MILLIGRAM
     Route: 048
  10. ZETIA [Concomitant]
     Dosage: 10 MILLIGRAM
     Route: 048
  11. MULTI-VITAMINS [Concomitant]
     Route: 048
  12. REVLIMID [Suspect]
     Dosage: 5-15MG
     Route: 048
     Dates: start: 20110601
  13. LOSARTAN POTASSIUM [Concomitant]
     Dosage: 25 MILLIGRAM
     Route: 048

REACTIONS (1)
  - DEATH [None]
